FAERS Safety Report 10922253 (Version 4)
Quarter: 2015Q2

REPORT INFORMATION
  Report Type: Spontaneous
  Country: ES (occurrence: ES)
  Receive Date: 20150317
  Receipt Date: 20150520
  Transmission Date: 20150821
  Serious: Yes (Other)
  Sender: FDA-Public Use
  Company Number: ES-AMGEN-ESPSP2014073364

PATIENT
  Age: 50 Year
  Sex: Female

DRUGS (15)
  1. LYRICA [Concomitant]
     Active Substance: PREGABALIN
     Indication: ANALGESIC THERAPY
     Dosage: UNK, ONCE EVERY 8 HOURS
  2. GELOCATIL [Concomitant]
     Indication: HEADACHE
     Dosage: UNK, ONE OR TWO DAILY (IF SHE HAD HEADACHE)
  3. ENBREL [Suspect]
     Active Substance: ETANERCEPT
     Dosage: 50 MG, WEEKLY
     Route: 065
  4. GELOCATIL [Concomitant]
     Indication: PYREXIA
  5. ENBREL [Suspect]
     Active Substance: ETANERCEPT
     Indication: RHEUMATOID ARTHRITIS
     Dosage: 50 MG, WEEKLY
     Route: 058
     Dates: start: 20140813
  6. ENBREL [Suspect]
     Active Substance: ETANERCEPT
     Dosage: 50 MG, QWK
     Route: 058
  7. CELEBREX [Concomitant]
     Active Substance: CELECOXIB
     Indication: ANALGESIC THERAPY
     Dosage: UNK, AS NEEDED
  8. SEGURIL [Concomitant]
     Active Substance: FUROSEMIDE
     Indication: POLYURIA
     Dosage: UNK, ONCE DAILY (IF SHE FELT SWOLLEN, SHE DID NOT TAKE IT REGULARLY)
  9. SERC                               /00034201/ [Concomitant]
     Indication: VERTIGO
     Dosage: UNK, ONE OR TWO DAILY (DEPENDING ON THE VERTIGO)
  10. GELOCATIL [Concomitant]
     Indication: DELIRIUM FEBRILE
  11. DETROL [Concomitant]
     Active Substance: TOLTERODINE TARTRATE
     Indication: BLOOD CHOLESTEROL
     Dosage: UNK, ONCE DAILY
  12. TARGIN [Concomitant]
     Active Substance: NALOXONE HYDROCHLORIDE\OXYCODONE HYDROCHLORIDE
     Indication: PAIN
     Dosage: 2 IN THE MORNING (ONE OF 10.5 MG AND ONE OF 5.2 MG), AT NIGHT ONLY ONE (DEPENDING ON THE PAIN SHE HA
  13. LYRICA [Concomitant]
     Active Substance: PREGABALIN
     Dosage: 1 DF, 3X/DAY
  14. ENBREL [Suspect]
     Active Substance: ETANERCEPT
     Dosage: 50 MG, QWK
     Route: 058
  15. MORPHINE [Concomitant]
     Active Substance: MORPHINE
     Indication: ANALGESIC THERAPY
     Dosage: UNK, AS NEEDED

REACTIONS (34)
  - Injection site mass [Not Recovered/Not Resolved]
  - Feeling cold [Recovering/Resolving]
  - Tinnitus [Recovered/Resolved]
  - Vomiting [Recovered/Resolved]
  - Pyrexia [Recovering/Resolving]
  - Arthralgia [Recovering/Resolving]
  - Eye pain [Recovering/Resolving]
  - Vertigo [Recovering/Resolving]
  - Chest pain [Recovering/Resolving]
  - Tachycardia [Recovering/Resolving]
  - Migraine [Recovering/Resolving]
  - Headache [Recovering/Resolving]
  - Pharyngitis [Recovering/Resolving]
  - Injection site pruritus [Not Recovered/Not Resolved]
  - Arthritis [Recovering/Resolving]
  - Injection site swelling [Not Recovered/Not Resolved]
  - Palpitations [Recovering/Resolving]
  - Feeling hot [Recovering/Resolving]
  - Malaise [Recovering/Resolving]
  - Delirium febrile [Recovered/Resolved]
  - Hypothermia [Recovering/Resolving]
  - Urinary tract infection [Recovering/Resolving]
  - Injection site erythema [Not Recovered/Not Resolved]
  - Injection site reaction [Not Recovered/Not Resolved]
  - Insomnia [Recovering/Resolving]
  - Depression [Recovering/Resolving]
  - Injection site pain [Not Recovered/Not Resolved]
  - Dyspnoea [Recovering/Resolving]
  - Cough [Recovering/Resolving]
  - Gait disturbance [Recovering/Resolving]
  - Chills [Recovering/Resolving]
  - Dyskinesia [Recovered/Resolved]
  - Drug ineffective [Recovering/Resolving]
  - Nasopharyngitis [Recovered/Resolved]

NARRATIVE: CASE EVENT DATE: 2014
